FAERS Safety Report 6970302-3 (Version None)
Quarter: 2010Q3

REPORT INFORMATION
  Report Type: 
  Country: None (occurrence: None)
  Receive Date: 20100903
  Receipt Date: 20100825
  Transmission Date: 20110219
  Serious: Yes (Hospitalization)
  Sender: FDA-Public Use
  Company Number: 2010SP045971

PATIENT
  Age: 47 Year
  Sex: Female

DRUGS (2)
  1. INTRON A [Suspect]
     Indication: HEPATITIS C
     Dosage: 10 MG; QW
     Dates: start: 20060101, end: 20060101
  2. PEGASYS [Suspect]
     Indication: PRODUCT USED FOR UNKNOWN INDICATION

REACTIONS (9)
  - ANXIETY [None]
  - CARDIAC MURMUR [None]
  - DEPRESSION [None]
  - FLUID RETENTION [None]
  - HEPATIC ENZYME ABNORMAL [None]
  - IMPAIRED WORK ABILITY [None]
  - LIVER DISORDER [None]
  - MENTAL DISORDER [None]
  - RENAL DISORDER [None]
